FAERS Safety Report 4785387-2 (Version None)
Quarter: 2005Q4

REPORT INFORMATION
  Report Type: 
  Country: None (occurrence: None)
  Receive Date: 20051003
  Receipt Date: 20050921
  Transmission Date: 20060501
  Serious: Yes (Hospitalization)
  Sender: FDA-Public Use
  Company Number: FR-BRISTOL-MYERS SQUIBB COMPANY-13119276

PATIENT
  Age: 66 Year
  Sex: Male
  Weight: 60 kg

DRUGS (5)
  1. ELISOR TABS [Suspect]
     Indication: HYPERCHOLESTEROLAEMIA
     Route: 048
  2. PLAVIX [Suspect]
  3. TRIATEC [Suspect]
     Indication: HYPERTENSION
  4. KREDEX [Suspect]
  5. INIPOMP [Suspect]

REACTIONS (7)
  - ANAEMIA [None]
  - CORONARY ARTERY STENOSIS [None]
  - GASTRITIS HAEMORRHAGIC [None]
  - HYPOXIA [None]
  - LUNG DISORDER [None]
  - RENAL FAILURE ACUTE [None]
  - SEPTIC SHOCK [None]
